FAERS Safety Report 16742082 (Version 2)
Quarter: 2019Q3

REPORT INFORMATION
  Report Type: Spontaneous
  Country: RO (occurrence: RO)
  Receive Date: 20190826
  Receipt Date: 20190927
  Transmission Date: 20191005
  Serious: Yes (Death, Life-Threatening, Hospitalization, Other)
  Sender: FDA-Public Use
  Company Number: RO-JNJFOC-20190823602

PATIENT
  Age: 66 Year
  Sex: Female
  Weight: 78 kg

DRUGS (23)
  1. CAELYX [Suspect]
     Active Substance: DOXORUBICIN HYDROCHLORIDE
     Indication: B PRECURSOR TYPE ACUTE LEUKAEMIA
     Dosage: VIALS OF 50 MG, 80 MG I.V. IN 16.01.2017.; CYCLICAL
     Route: 042
     Dates: start: 20170116
  2. DEXAMETHASONE. [Suspect]
     Active Substance: DEXAMETHASONE
     Dosage: 5 VIALS/DAY, I.V., BETWEEN 13 AND 16.01.2017 AND BETWEEN 23 AND 26.01.2017; CYCLICAL
     Route: 042
     Dates: start: 20170123, end: 20170126
  3. NORMIX [Suspect]
     Active Substance: RIFAXIMIN
     Indication: PRODUCT USED FOR UNKNOWN INDICATION
     Dosage: 3X2 TABLETS/DAY, ORALLY, BETWEEN 3 AND 26.02.2017
     Route: 048
     Dates: start: 20170203, end: 20170226
  4. IMIPENEM [Suspect]
     Active Substance: IMIPENEM
     Indication: ENTEROCOCCAL INFECTION
     Dosage: VIALS OF 0.5 G, AT A DOSING OF 4X1 VIALS/DAY, I.V., BETWEEN 13 AND 26.02.2017.
     Route: 042
     Dates: start: 20170213, end: 20170226
  5. DEXAMETHASONE. [Suspect]
     Active Substance: DEXAMETHASONE
     Dosage: 5 VIALS/DAY, I.V., BETWEEN 13 AND 16.01.2017 AND BETWEEN 23 AND 26.01.2017; CYCLICAL
     Route: 042
     Dates: start: 20170113, end: 20170116
  6. VINCRISTINE [Suspect]
     Active Substance: VINCRISTINE
     Indication: B PRECURSOR TYPE ACUTE LEUKAEMIA
     Dosage: CYCLICAL
     Route: 042
     Dates: start: 201701, end: 20170123
  7. AMPICILLIN [Suspect]
     Active Substance: AMPICILLIN
     Indication: ENTEROCOCCAL INFECTION
  8. MEROPENEM. [Suspect]
     Active Substance: MEROPENEM
     Indication: ENTEROCOCCAL INFECTION
     Dosage: VIALS OF 1 G, AT A DOSING OF 3 X1G/DAY, I.V., ON 12.02.2017 (THEN IT LEFT IN THE HOSPITAL PHARMACY).
     Route: 042
     Dates: start: 20170212
  9. SUMETROLIM [Suspect]
     Active Substance: SULFAMETHOXAZOLE\TRIMETHOPRIM
     Indication: PRODUCT USED FOR UNKNOWN INDICATION
     Dosage: 2X2 TABLETS/DAY, ORALLY, ON 5, 7, 9, 11, 13.02.2017
     Route: 048
     Dates: start: 20170205, end: 20170213
  10. METHYLPREDNISOLONE. [Suspect]
     Active Substance: METHYLPREDNISOLONE
     Indication: PRODUCT USED FOR UNKNOWN INDICATION
     Dosage: VIALS OF 500 MG, 50 MG AT 12 HOURS INTERVAL, I.V., 6 DOSES, BETWEEN 3 AND 5.02.2017
     Route: 042
     Dates: start: 20170203, end: 20170205
  11. VINCRISTINE [Suspect]
     Active Substance: VINCRISTINE
     Route: 042
     Dates: start: 20170115, end: 201701
  12. LINEZOLIDE [Suspect]
     Active Substance: LINEZOLID
     Indication: URINARY TRACT INFECTION ENTEROCOCCAL
     Dosage: VIALS OF 600 MG AT A DOSING OF 2X1 VIALS/DAY, I.V., BETWEEN 12.02 AND 26.02.2017
     Route: 042
     Dates: start: 20170212, end: 20170226
  13. LINEZOLIDE [Suspect]
     Active Substance: LINEZOLID
     Indication: ENTEROCOCCAL INFECTION
  14. CYCLOPHOSPHAMIDE. [Suspect]
     Active Substance: CYCLOPHOSPHAMIDE
     Indication: B PRECURSOR TYPE ACUTE LEUKAEMIA
     Dosage: VIALS OF 200 MG, 340 MG/DOSE, 2 DOSES/DAY, I.V., AT 12 HOURS INTERVAL, BETWEEN 13 AND 15.01.2017....
     Route: 042
     Dates: start: 20170113, end: 20170115
  15. MEROPENEM. [Suspect]
     Active Substance: MEROPENEM
     Indication: URINARY TRACT INFECTION ENTEROCOCCAL
  16. CYTARABINE. [Suspect]
     Active Substance: CYTARABINE
     Dosage: VIALS OF 1 G, 25 MG I.T. ON 30.01.2017; CYCLICAL
     Route: 039
     Dates: start: 20170130
  17. METHOTREXATE. [Suspect]
     Active Substance: METHOTREXATE
     Indication: B PRECURSOR TYPE ACUTE LEUKAEMIA
     Dosage: CYCLICAL
     Route: 042
     Dates: start: 20170203, end: 20170203
  18. AMPICILLIN [Suspect]
     Active Substance: AMPICILLIN
     Indication: URINARY TRACT INFECTION ENTEROCOCCAL
     Dosage: VIALS OF 1 G AT A DOSING OF 2X2 G/DAY, I.V., BETWEEN 3 AND 11.02.2017
     Route: 042
     Dates: start: 20170203, end: 20170211
  19. CYTARABINE. [Suspect]
     Active Substance: CYTARABINE
     Indication: B PRECURSOR TYPE ACUTE LEUKAEMIA
     Dosage: VIALS OF 2 G, 2X2 GRAMS/DAY, IN I.V., PERFUSIONS OF 2 HOURS, AT 12 HOURS INTERVAL, IN 4 AND IN 5....
     Route: 042
     Dates: start: 20170204, end: 20170205
  20. DEXAMETHASONE. [Suspect]
     Active Substance: DEXAMETHASONE
     Indication: B PRECURSOR TYPE ACUTE LEUKAEMIA
     Dosage: ONE DROP PER HOUR IN THE CONJUNCTIVAL SAC, BETWEEN 4 AND 7.0-2.2017
     Route: 031
     Dates: start: 20170204, end: 20170207
  21. IMIPENEM [Suspect]
     Active Substance: IMIPENEM
     Indication: URINARY TRACT INFECTION
  22. METHOTREXATE. [Suspect]
     Active Substance: METHOTREXATE
     Dosage: VIALS OF 5 G, 345 MG, I.V. DURING 2 HOURS, IN 3.02.2017
     Route: 042
     Dates: start: 20170203, end: 20170203
  23. METHOTREXATE. [Suspect]
     Active Substance: METHOTREXATE
     Dosage: VIALS OF 5 G, 15 MG, I.T., IN 30.01.2017; CYCLICAL
     Route: 037
     Dates: start: 20170130, end: 20170130

REACTIONS (7)
  - Hepatic infarction [Not Recovered/Not Resolved]
  - Hepatotoxicity [Not Recovered/Not Resolved]
  - Product use in unapproved indication [Unknown]
  - Acute hepatic failure [Fatal]
  - Off label use [Unknown]
  - Aplasia [Recovering/Resolving]
  - Clostridium difficile colitis [Recovered/Resolved]

NARRATIVE: CASE EVENT DATE: 2017
